FAERS Safety Report 19843575 (Version 1)
Quarter: 2021Q3

REPORT INFORMATION
  Report Type: Other
  Country: GB (occurrence: GB)
  Receive Date: 20210917
  Receipt Date: 20210917
  Transmission Date: 20211014
  Serious: Yes (Other)
  Sender: FDA-Public Use
  Company Number: GB-CELLTRION INC.-2021GB012538

PATIENT

DRUGS (2)
  1. RITUXIMAB. [Suspect]
     Active Substance: RITUXIMAB
     Dosage: 1000 MG
     Route: 042
     Dates: start: 20210824, end: 20210824
  2. RITUXIMAB. [Suspect]
     Active Substance: RITUXIMAB
     Indication: DRUG HYPERSENSITIVITY
     Dosage: 1000 MG
     Route: 042
     Dates: start: 20210824, end: 20210824

REACTIONS (2)
  - Off label use [Unknown]
  - Hypersensitivity [Recovering/Resolving]

NARRATIVE: CASE EVENT DATE: 20210824
